FAERS Safety Report 7949543-4 (Version None)
Quarter: 2011Q4

REPORT INFORMATION
  Report Type: 
  Country: None (occurrence: None)
  Receive Date: 20111130
  Receipt Date: 20111121
  Transmission Date: 20120403
  Serious: Yes (Hospitalization)
  Sender: FDA-Public Use
  Company Number: US-BAYER-2011-040454

PATIENT
  Age: 18 Year
  Sex: Female
  Weight: 62.132 kg

DRUGS (3)
  1. ZYRTEC [Concomitant]
     Indication: MULTIPLE ALLERGIES
     Dosage: UNK
     Route: 048
     Dates: start: 20061002
  2. AZITHROMYCIN [Concomitant]
     Dosage: 250 MG, UNK
     Route: 048
     Dates: start: 20071119
  3. YASMIN [Suspect]
     Indication: ENDOMETRIOSIS
     Dosage: UNK
     Dates: start: 20060417, end: 20080102

REACTIONS (13)
  - ANXIETY [None]
  - HYPOAESTHESIA [None]
  - GROIN PAIN [None]
  - FEAR [None]
  - PAIN [None]
  - PAIN IN EXTREMITY [None]
  - LOCAL SWELLING [None]
  - DEEP VEIN THROMBOSIS [None]
  - EMOTIONAL DISTRESS [None]
  - LYMPHOEDEMA [None]
  - GENERAL PHYSICAL HEALTH DETERIORATION [None]
  - OEDEMA PERIPHERAL [None]
  - PERIPHERAL COLDNESS [None]
